FAERS Safety Report 8186171-2 (Version None)
Quarter: 2012Q1

REPORT INFORMATION
  Report Type: 
  Country: None (occurrence: None)
  Receive Date: 20120306
  Receipt Date: 20120301
  Transmission Date: 20120608
  Serious: No
  Sender: FDA-Public Use
  Company Number: US-PFIZER INC-2012056112

PATIENT
  Sex: Male
  Weight: 113.38 kg

DRUGS (1)
  1. LIPITOR [Suspect]
     Indication: HIGH DENSITY LIPOPROTEIN DECREASED
     Dosage: UNK, 1X/DAY
     Route: 048
     Dates: start: 20060601, end: 20060601

REACTIONS (1)
  - HYPERTENSION [None]
